FAERS Safety Report 17355039 (Version 2)
Quarter: 2020Q1

REPORT INFORMATION
  Report Type: Report from Study
  Country: US (occurrence: US)
  Receive Date: 20200131
  Receipt Date: 20200204
  Transmission Date: 20200409
  Serious: Yes (Life-Threatening, Hospitalization, Other)
  Sender: FDA-Public Use
  Company Number: NVSC2020US021962

PATIENT
  Age: 49 Year
  Sex: Female

DRUGS (1)
  1. GILENYA [Suspect]
     Active Substance: FINGOLIMOD HYDROCHLORIDE
     Indication: MULTIPLE SCLEROSIS
     Dosage: 0.5 MG, QD
     Route: 048
     Dates: start: 20200114, end: 20200128

REACTIONS (10)
  - Pain [Unknown]
  - Abscess intestinal [Unknown]
  - Infection [Unknown]
  - Feeling abnormal [Unknown]
  - Hypotension [Unknown]
  - Organ failure [Unknown]
  - Peripheral swelling [Unknown]
  - Fall [Unknown]
  - Colonic abscess [Unknown]
  - Hypertension [Unknown]

NARRATIVE: CASE EVENT DATE: 20200120
